FAERS Safety Report 8902453 (Version 2)
Quarter: 2012Q4

REPORT INFORMATION
  Report Type: 
  Country: US (occurrence: US)
  Receive Date: 20121112
  Receipt Date: 20121120
  Transmission Date: 20130627
  Serious: Yes (Other)
  Sender: FDA-Public Use
  Company Number: US-JNJFOC-20121101554

PATIENT
  Age: 48 Year
  Sex: Female
  Weight: 71.22 kg

DRUGS (2)
  1. ZYRTEC IR [Suspect]
     Route: 048
  2. ZYRTEC IR [Suspect]
     Indication: MULTIPLE ALLERGIES
     Route: 048
     Dates: start: 20121029, end: 20121101

REACTIONS (7)
  - Feeling jittery [Recovered/Resolved]
  - Feeling abnormal [Recovered/Resolved]
  - Insomnia [Recovered/Resolved]
  - Product packaging issue [Unknown]
  - Overdose [Recovered/Resolved]
  - Product quality issue [None]
  - Product label issue [None]
